FAERS Safety Report 25321525 (Version 3)
Quarter: 2025Q3

REPORT INFORMATION
  Report Type: Spontaneous
  Country: US (occurrence: US)
  Receive Date: 20250516
  Receipt Date: 20250813
  Transmission Date: 20251021
  Serious: No
  Sender: JOHNSON AND JOHNSON
  Company Number: US-JNJFOC-20250506308

PATIENT
  Age: 46 Year
  Sex: Female

DRUGS (3)
  1. TREMFYA [Suspect]
     Active Substance: GUSELKUMAB
     Indication: Colitis ulcerative
     Route: 058
  2. TREMFYA [Suspect]
     Active Substance: GUSELKUMAB
  3. BUDESONIDE [Concomitant]
     Active Substance: BUDESONIDE
     Indication: Colitis ulcerative

REACTIONS (3)
  - Needle issue [Unknown]
  - Product leakage [Unknown]
  - Injection site swelling [Unknown]
